FAERS Safety Report 21075449 (Version 1)
Quarter: 2022Q3

REPORT INFORMATION
  Report Type: Spontaneous
  Country: CN (occurrence: CN)
  Receive Date: 20220713
  Receipt Date: 20220713
  Transmission Date: 20221027
  Serious: Yes (Death, Other)
  Sender: FDA-Public Use
  Company Number: CN-PFIZER INC-PV202200013877

PATIENT
  Age: 9 Year
  Sex: Male

DRUGS (4)
  1. METHYLPREDNISOLONE [Suspect]
     Active Substance: METHYLPREDNISOLONE
     Indication: Antiinflammatory therapy
     Dosage: UNK
  2. CEFTRIAXONE\VANCOMYCIN [Suspect]
     Active Substance: CEFTRIAXONE\VANCOMYCIN
     Indication: Infection
     Dosage: UNK
  3. MANNITOL [Suspect]
     Active Substance: MANNITOL
     Indication: Intracranial pressure increased
     Dosage: UNK
  4. HUMAN IMMUNOGLOBULIN G [Suspect]
     Active Substance: HUMAN IMMUNOGLOBULIN G
     Indication: Immune system disorder
     Dosage: UNK

REACTIONS (3)
  - Respiratory arrest [Fatal]
  - Mydriasis [Fatal]
  - Drug ineffective [Fatal]
